FAERS Safety Report 8845263 (Version 1)
Quarter: 2012Q4

REPORT INFORMATION
  Report Type: 
  Country: IT (occurrence: IT)
  Receive Date: 20121017
  Receipt Date: 20121017
  Transmission Date: 20130627
  Serious: Yes (Hospitalization)
  Sender: FDA-Public Use
  Company Number: IT-BRISTOL-MYERS SQUIBB COMPANY-17026238

PATIENT
  Sex: Female

DRUGS (3)
  1. ENTECAVIR TABS [Suspect]
     Indication: HEPATITIS B
  2. ENTECAVIR TABS [Suspect]
     Indication: HEPATIC CIRRHOSIS
  3. METFORMIN HCL [Suspect]
     Indication: DIABETES MELLITUS
     Dosage: 1 df= 1000 X 3

REACTIONS (1)
  - Acidosis [Recovered/Resolved]
